FAERS Safety Report 17365590 (Version 1)
Quarter: 2020Q1

REPORT INFORMATION
  Report Type: Spontaneous
  Country: CN (occurrence: CN)
  Receive Date: 20200204
  Receipt Date: 20200204
  Transmission Date: 20200409
  Serious: Yes (Other)
  Sender: FDA-Public Use
  Company Number: CN-FRESENIUS KABI-FK202001044

PATIENT
  Age: 52 Year
  Sex: Male

DRUGS (5)
  1. AMIODARONE HCL (MANUFACTURER UNKNOWN) [Suspect]
     Active Substance: AMIODARONE HYDROCHLORIDE
     Indication: VENTRICULAR EXTRASYSTOLES
  2. GLUCOSE [Concomitant]
     Active Substance: DEXTROSE
     Dosage: MIXED WITH 600 MG AMIODARONE
     Route: 042
  3. AMIODARONE HCL (MANUFACTURER UNKNOWN) [Suspect]
     Active Substance: AMIODARONE HYDROCHLORIDE
     Indication: ACUTE MYOCARDIAL INFARCTION
     Dosage: MIXED WITH 30 ML 5 PERCENT GLUCOSE (DEXTROSE)
     Route: 042
  4. GLUCOSE [Concomitant]
     Active Substance: DEXTROSE
     Indication: MEDICATION DILUTION
     Dosage: MIXED WITH 150 MG AMIODARONE
     Route: 042
  5. AMIODARONE HCL (MANUFACTURER UNKNOWN) [Suspect]
     Active Substance: AMIODARONE HYDROCHLORIDE
     Indication: ATRIAL FIBRILLATION
     Dosage: MIXED WITH 30 ML OF 5 PERCENT GLUCOSE (DEXTROSE) INFUSED AT A RATE OF 3 ML/HR
     Route: 042

REACTIONS (3)
  - Compartment syndrome [Unknown]
  - Incorrect route of product administration [Unknown]
  - Phlebitis superficial [Unknown]
